FAERS Safety Report 8426801-0 (Version None)
Quarter: 2012Q2

REPORT INFORMATION
  Report Type: 
  Country: None (occurrence: None)
  Receive Date: 20120531
  Receipt Date: 20120523
  Transmission Date: 20120825
  Serious: Yes (Death)
  Sender: FDA-Public Use
  Company Number: DSA_57505_2012

PATIENT
  Sex: Male
  Weight: 77.1115 kg

DRUGS (6)
  1. KLONOPIN [Concomitant]
  2. XENAZINE [Suspect]
     Indication: HUNTINGTON'S DISEASE
     Dosage: (25 MG BID ORAL)
     Route: 048
     Dates: start: 20110920, end: 20120424
  3. LEXAPRO [Concomitant]
  4. SEROQUEL XR [Concomitant]
  5. LISINOPRIL [Concomitant]
  6. CELEBREX [Concomitant]

REACTIONS (2)
  - HEAD INJURY [None]
  - FALL [None]
